FAERS Safety Report 5163444-9 (Version None)
Quarter: 2006Q4

REPORT INFORMATION
  Report Type: 
  Country: None (occurrence: None)
  Receive Date: 20061124
  Receipt Date: 20061110
  Transmission Date: 20070319
  Serious: Yes (Hospitalization)
  Sender: FDA-Public Use
  Company Number: 2006125211

PATIENT
  Age: 68 Year
  Sex: Male
  Weight: 117.9352 kg

DRUGS (9)
  1. ATORVASTATIN (ATORVASTATIN) [Suspect]
     Indication: CORONARY ARTERY DISEASE
     Dosage: 20 MG (20 MG, 1 IN 1 D), ORAL
     Route: 048
     Dates: start: 20041108, end: 20060926
  2. OXYGEN (OXYGEN) [Concomitant]
  3. LABETALOL HCL [Concomitant]
  4. NORVASC [Concomitant]
  5. ASPIRIN [Concomitant]
  6. VALSARTAN [Concomitant]
  7. ALLOPURINOL [Concomitant]
  8. HUMALOG [Concomitant]
  9. FUROSEMIDE [Concomitant]

REACTIONS (20)
  - BACK PAIN [None]
  - BLOOD GLUCOSE INCREASED [None]
  - BLOOD PRESSURE DIASTOLIC DECREASED [None]
  - BLOOD PRESSURE SYSTOLIC INCREASED [None]
  - DERMATOMYOSITIS [None]
  - DRY MOUTH [None]
  - HAEMATOCRIT DECREASED [None]
  - HYPERREFLEXIA [None]
  - INFLAMMATION [None]
  - INTERSTITIAL LUNG DISEASE [None]
  - LUNG DISORDER [None]
  - OCCULT BLOOD POSITIVE [None]
  - PARAESTHESIA [None]
  - PITTING OEDEMA [None]
  - PLEURAL EFFUSION [None]
  - PLEURAL FIBROSIS [None]
  - POLYMYALGIA RHEUMATICA [None]
  - RHABDOMYOLYSIS [None]
  - SUPERINFECTION LUNG [None]
  - THERAPY NON-RESPONDER [None]
